FAERS Safety Report 8115257-3 (Version None)
Quarter: 2012Q1

REPORT INFORMATION
  Report Type: 
  Country: None (occurrence: None)
  Receive Date: 20120206
  Receipt Date: 20120131
  Transmission Date: 20120608
  Serious: Yes (Hospitalization)
  Sender: FDA-Public Use
  Company Number: IE-ASTELLAS-2011EU009159

PATIENT
  Sex: Female

DRUGS (6)
  1. TACROLIMUS [Suspect]
     Indication: LIVER TRANSPLANT
     Dosage: UNK
     Route: 065
  2. PREDNISOLONE [Suspect]
     Dosage: UNK
     Route: 065
  3. PANCREATIN TRIPLE STRENGTH CAP [Concomitant]
     Dosage: UNK
     Route: 065
  4. MYCOPHENOLATE MOFETIL [Suspect]
     Dosage: UNK
     Route: 065
  5. MESALAMINE [Concomitant]
     Dosage: UNK
     Route: 065
  6. WARFARIN SODIUM [Concomitant]
     Dosage: UNK
     Route: 065

REACTIONS (3)
  - BREECH PRESENTATION [None]
  - MATERNAL EXPOSURE DURING PREGNANCY [None]
  - RESPIRATORY TRACT INFECTION [None]
